FAERS Safety Report 9471436 (Version 1)
Quarter: 2013Q3

REPORT INFORMATION
  Report Type: Spontaneous
  Country: BR (occurrence: BR)
  Receive Date: 20130822
  Receipt Date: 20130822
  Transmission Date: 20140515
  Serious: Yes (Hospitalization)
  Sender: FDA-Public Use
  Company Number: BR-ASTRAZENECA-2013SE63658

PATIENT
  Age: 46 Year
  Sex: Male
  Weight: 107 kg

DRUGS (3)
  1. CRESTOR [Suspect]
     Dosage: TWO TIMES A DAY
     Route: 048
     Dates: start: 2012
  2. BRILINTA [Suspect]
     Indication: CORONARY ARTERY OCCLUSION
     Dosage: TWO TIMES A DAY
     Route: 048
     Dates: start: 2013
  3. ASA [Concomitant]
     Indication: ANTICOAGULANT THERAPY

REACTIONS (3)
  - Coronary artery occlusion [Recovered/Resolved]
  - Dyspnoea [Unknown]
  - Off label use [Not Recovered/Not Resolved]
